FAERS Safety Report 10041376 (Version 1)
Quarter: 2014Q1

REPORT INFORMATION
  Report Type: Spontaneous
  Country: US (occurrence: None)
  Receive Date: 20140326
  Receipt Date: 20140326
  Transmission Date: 20141002
  Serious: Yes (Life-Threatening, Hospitalization)
  Sender: FDA-Public Use
  Company Number: None

PATIENT
  Age: 65 Year
  Sex: Male
  Weight: 90.72 kg

DRUGS (13)
  1. DIVALPROEX DR [Suspect]
     Indication: DEPRESSION
     Dosage: 2 PILLS, BID, ORAL
     Route: 048
     Dates: start: 20140117, end: 20140324
  2. CITALOPRAM HYDROBROMIDE [Concomitant]
  3. GLYBURIDE [Concomitant]
  4. LEVOTHYROXINE (SYNTHROID) [Concomitant]
  5. QUETIAPINE FUMARATE [Concomitant]
  6. LISINOPRIL [Concomitant]
  7. METFORMIN HCL [Concomitant]
  8. CARBIDOPA 25/LEVODOPA [Concomitant]
  9. ATENOLOL [Concomitant]
  10. ZOLPIDEM TARTRATE [Concomitant]
  11. SIMVASTATIN [Concomitant]
  12. NIACIN (SLO-NIACIN) [Concomitant]
  13. FISH OIL [Concomitant]

REACTIONS (4)
  - Depression [None]
  - Suicidal ideation [None]
  - Condition aggravated [None]
  - Drug level decreased [None]
